FAERS Safety Report 21972169 (Version 5)
Quarter: 2024Q1

REPORT INFORMATION
  Report Type: Spontaneous
  Country: US (occurrence: US)
  Receive Date: 20230209
  Receipt Date: 20240104
  Transmission Date: 20240410
  Serious: Yes (Other)
  Sender: FDA-Public Use
  Company Number: US-BAYER-2023P008978

PATIENT
  Age: 27 Year
  Sex: Female
  Weight: 59.864 kg

DRUGS (1)
  1. KYLEENA [Suspect]
     Active Substance: LEVONORGESTREL
     Indication: Contraception
     Dosage: 17.5?G/DAY
     Route: 015
     Dates: start: 20220624, end: 20221215

REACTIONS (5)
  - Pregnancy with contraceptive device [Recovered/Resolved]
  - Haemorrhage in pregnancy [Recovered/Resolved]
  - Abortion spontaneous [Recovered/Resolved]
  - Amenorrhoea [None]
  - Drug ineffective [None]

NARRATIVE: CASE EVENT DATE: 20220801
